FAERS Safety Report 5234279-3 (Version None)
Quarter: 2007Q1

REPORT INFORMATION
  Report Type: 
  Country: None (occurrence: None)
  Receive Date: 20070209
  Receipt Date: 20070129
  Transmission Date: 20070707
  Serious: Yes (Other)
  Sender: FDA-Public Use
  Company Number: PHBS2007JP01925

PATIENT
  Age: 43 Year
  Sex: Male
  Weight: 68 kg

DRUGS (1)
  1. LAMISIL [Suspect]
     Indication: NAIL TINEA
     Dosage: 125 MG/DAY
     Route: 048
     Dates: start: 20060906, end: 20061228

REACTIONS (9)
  - ANOREXIA [None]
  - ARTHRALGIA [None]
  - BRONCHITIS [None]
  - CHEST X-RAY ABNORMAL [None]
  - COUGH [None]
  - PHARYNGOLARYNGEAL PAIN [None]
  - PULMONARY FIBROSIS [None]
  - PYREXIA [None]
  - RALES [None]
